FAERS Safety Report 8804129 (Version 2)
Quarter: 2012Q4

REPORT INFORMATION
  Report Type: 
  Country: GR (occurrence: GR)
  Receive Date: 20120924
  Receipt Date: 20121107
  Transmission Date: 20130627
  Serious: Yes (Hospitalization)
  Sender: FDA-Public Use
  Company Number: GR-BAYER-2012-098688

PATIENT
  Age: 51 Year
  Sex: Male

DRUGS (4)
  1. BETAFERON [Suspect]
     Indication: MULTIPLE SCLEROSIS
     Dosage: UNK
     Route: 058
     Dates: start: 201204, end: 201209
  2. GILENYA [Concomitant]
     Indication: MULTIPLE SCLEROSIS
     Dosage: UNK
     Dates: start: 20121013
  3. TOBREX [Concomitant]
  4. PLAVIX [Concomitant]
     Indication: CARDIAC DISORDER

REACTIONS (3)
  - Myocardial infarction [None]
  - Depressed mood [Recovering/Resolving]
  - Injection site erythema [Recovered/Resolved]
